FAERS Safety Report 12690145 (Version 3)
Quarter: 2016Q3

REPORT INFORMATION
  Report Type: Report from Study
  Country: AR (occurrence: AR)
  Receive Date: 20160826
  Receipt Date: 20160927
  Transmission Date: 20161109
  Serious: Yes (Other)
  Sender: FDA-Public Use
  Company Number: PHHY2016AR060132

PATIENT
  Sex: Male

DRUGS (3)
  1. ONBREZ BREEZHALER [Suspect]
     Active Substance: INDACATEROL
     Indication: CHRONIC OBSTRUCTIVE PULMONARY DISEASE
     Dosage: 1 DF, QD, (STARTED 4 YEARS AGO)
     Route: 065
     Dates: end: 201504
  2. ONBREZ BREEZHALER [Suspect]
     Active Substance: INDACATEROL
     Dosage: 1 DF, QD
     Route: 065
     Dates: start: 201510, end: 20160819
  3. SPIRIVA [Concomitant]
     Active Substance: TIOTROPIUM BROMIDE MONOHYDRATE
     Indication: PRODUCT USED FOR UNKNOWN INDICATION
     Dosage: UNK
     Route: 065
     Dates: start: 201602

REACTIONS (8)
  - Wheezing [Recovering/Resolving]
  - Intervertebral disc protrusion [Not Recovered/Not Resolved]
  - Pain [Recovering/Resolving]
  - Productive cough [Recovering/Resolving]
  - Choking [Recovering/Resolving]
  - Fatigue [Recovering/Resolving]
  - Product physical issue [Unknown]
  - Drug ineffective [Recovered/Resolved]
